FAERS Safety Report 9889266 (Version 2)
Quarter: 2014Q2

REPORT INFORMATION
  Report Type: Report from Study
  Country: JP (occurrence: JP)
  Receive Date: 20140211
  Receipt Date: 20140416
  Transmission Date: 20141212
  Serious: Yes (Death, Life-Threatening, Disabling, Other)
  Sender: FDA-Public Use
  Company Number: JP-009507513-1402JPN004944

PATIENT
  Age: 64 Year
  Sex: Male
  Weight: 75 kg

DRUGS (2)
  1. TEMODAL INFUSION 100MG [Suspect]
     Indication: GLIOBLASTOMA MULTIFORME
     Dosage: 75 MG/SQM
     Route: 041
     Dates: start: 20120213, end: 20120325
  2. UNASYN-S [Suspect]
     Dosage: DAILY DOSE UNKNOWN
     Route: 041
     Dates: start: 20120224, end: 20120405

REACTIONS (2)
  - Disease progression [Fatal]
  - Hepatic function abnormal [Recovering/Resolving]
